FAERS Safety Report 6140331-0 (Version None)
Quarter: 2009Q2

REPORT INFORMATION
  Report Type: 
  Country: None (occurrence: None)
  Receive Date: 20090401
  Receipt Date: 20090320
  Transmission Date: 20091009
  Serious: Yes (Hospitalization)
  Sender: FDA-Public Use
  Company Number: FR-ELI_LILLY_AND_COMPANY-FR200903005146

PATIENT
  Sex: Female

DRUGS (9)
  1. PROZAC [Suspect]
     Dosage: UNK, UNK
     Route: 048
  2. RISPERDAL [Concomitant]
     Dosage: 1 MG, DAILY (1/D)
     Route: 048
     Dates: start: 20080701, end: 20080101
  3. RISPERDAL [Concomitant]
     Dosage: 2 MG, DAILY (1/D)
     Route: 048
     Dates: start: 20080101, end: 20080101
  4. RISPERDAL [Concomitant]
     Dosage: 0.5 MG, DAILY (1/D)
     Route: 048
     Dates: start: 20080101, end: 20080901
  5. MODOPAR [Concomitant]
     Indication: PARKINSON'S DISEASE
     Dosage: 6 D/F, UNK
     Route: 048
  6. TRIVASTAL [Concomitant]
     Indication: PARKINSON'S DISEASE
     Route: 048
  7. NEXIUM [Concomitant]
     Route: 048
  8. MEPRONIZINE [Concomitant]
     Indication: INSOMNIA
     Route: 048
  9. DIANTALVIC [Concomitant]
     Indication: PAIN
     Route: 048

REACTIONS (3)
  - AGITATED DEPRESSION [None]
  - DISTURBANCE IN ATTENTION [None]
  - PSYCHOMOTOR RETARDATION [None]
